FAERS Safety Report 11639886 (Version 1)
Quarter: 2015Q4

REPORT INFORMATION
  Report Type: Spontaneous
  Country: US (occurrence: None)
  Receive Date: 20151016
  Receipt Date: 20151016
  Transmission Date: 20160304
  Serious: No
  Sender: FDA-Public Use
  Company Number: None

PATIENT
  Age: 67 Year
  Sex: Female
  Weight: 48.08 kg

DRUGS (3)
  1. CALCIUM AND D3 [Concomitant]
  2. IBANDRONATE SODIUM 150 MG ALVOGEN (THOUGH I USED MYLAN BEFOR [Suspect]
     Active Substance: IBANDRONATE SODIUM
     Indication: OSTEOPENIA
     Route: 048
     Dates: start: 20131001, end: 20151001
  3. IBANDRONATE SODIUM 150 MG ALVOGEN (THOUGH I USED MYLAN BEFOR [Suspect]
     Active Substance: IBANDRONATE SODIUM
     Indication: OSTEOPOROSIS
     Route: 048
     Dates: start: 20131001, end: 20151001

REACTIONS (2)
  - Product quality issue [None]
  - Osteoporosis [None]

NARRATIVE: CASE EVENT DATE: 20150922
